FAERS Safety Report 5054680-0 (Version None)
Quarter: 2006Q2

REPORT INFORMATION
  Report Type: 
  Country: None (occurrence: None)
  Receive Date: 20060614
  Receipt Date: 20060306
  Transmission Date: 20061013
  Serious: No
  Sender: FDA-Public Use
  Company Number: US200603001528

PATIENT
  Age: 55 Year
  Sex: Male

DRUGS (3)
  1. CIALIS [Suspect]
     Indication: ERECTILE DYSFUNCTION
     Dosage: 20 MG
     Dates: start: 20050301
  2. WELLBUTRIN [Concomitant]
  3. ACYCLOVIR [Concomitant]

REACTIONS (4)
  - HERPES SIMPLEX [None]
  - PARAESTHESIA [None]
  - RASH PUSTULAR [None]
  - SKIN LESION [None]
